FAERS Safety Report 22141747 (Version 1)
Quarter: 2023Q1

REPORT INFORMATION
  Report Type: Spontaneous
  Country: US (occurrence: US)
  Receive Date: 20230327
  Receipt Date: 20230327
  Transmission Date: 20230417
  Serious: No
  Sender: FDA-Public Use
  Company Number: US-PFIZER INC-202300129619

PATIENT
  Age: 61 Year
  Sex: Female

DRUGS (1)
  1. INLYTA [Suspect]
     Active Substance: AXITINIB
     Dosage: TAKE 2 TABLETS OF 1 MG WITH 1 TABLET OF 5 MG (7 MG TOTAL) EVERY 12 HOURS
     Dates: end: 202303

REACTIONS (1)
  - Neoplasm progression [Unknown]
